FAERS Safety Report 11870440 (Version 1)
Quarter: 2015Q4

REPORT INFORMATION
  Report Type: Spontaneous
  Country: US (occurrence: None)
  Receive Date: 20151224
  Receipt Date: 20151224
  Transmission Date: 20160305
  Serious: Yes (Hospitalization)
  Sender: FDA-Public Use
  Company Number: None

PATIENT
  Age: 72 Year
  Sex: Female
  Weight: 112.5 kg

DRUGS (5)
  1. NOLVADEX [Suspect]
     Active Substance: TAMOXIFEN CITRATE
     Dates: end: 20151217
  2. GLIPIZIDE. [Concomitant]
     Active Substance: GLIPIZIDE
  3. PEPCID [Concomitant]
     Active Substance: FAMOTIDINE
  4. LASIX [Concomitant]
     Active Substance: FUROSEMIDE
  5. METOPROLOL [Concomitant]
     Active Substance: METOPROLOL

REACTIONS (2)
  - Cardiac failure acute [None]
  - Acute respiratory failure [None]

NARRATIVE: CASE EVENT DATE: 20151214
